FAERS Safety Report 21674489 (Version 1)
Quarter: 2022Q4

REPORT INFORMATION
  Report Type: Spontaneous
  Country: US (occurrence: US)
  Receive Date: 20221202
  Receipt Date: 20221202
  Transmission Date: 20230112
  Serious: No
  Sender: FDA-Public Use
  Company Number: US-PFIZER INC-PV202200114192

PATIENT
  Age: 65 Year
  Sex: Male

DRUGS (14)
  1. DIFLUCAN [Suspect]
     Active Substance: FLUCONAZOLE
     Indication: Pruritus genital
     Dosage: UNK
  2. DIFLUCAN [Suspect]
     Active Substance: FLUCONAZOLE
     Indication: Lichenification
  3. PLAQUENIL [Suspect]
     Active Substance: HYDROXYCHLOROQUINE SULFATE
     Indication: Pruritus genital
     Dosage: UNK
  4. PLAQUENIL [Suspect]
     Active Substance: HYDROXYCHLOROQUINE SULFATE
     Indication: Lichenification
  5. CLOBETASOL [Suspect]
     Active Substance: CLOBETASOL
     Indication: Pruritus genital
     Dosage: UNK
  6. CLOBETASOL [Suspect]
     Active Substance: CLOBETASOL
     Indication: Lichenification
  7. CLOTRIMAZOLE [Suspect]
     Active Substance: CLOTRIMAZOLE
     Indication: Pruritus genital
     Dosage: UNK
  8. CLOTRIMAZOLE [Suspect]
     Active Substance: CLOTRIMAZOLE
     Indication: Lichenification
  9. BETAMETHASONE [Suspect]
     Active Substance: BETAMETHASONE
     Indication: Pruritus genital
     Dosage: UNK
  10. BETAMETHASONE [Suspect]
     Active Substance: BETAMETHASONE
     Indication: Lichenification
  11. PROTOPIC [Suspect]
     Active Substance: TACROLIMUS
     Indication: Pruritus genital
     Dosage: UNK
  12. PROTOPIC [Suspect]
     Active Substance: TACROLIMUS
     Indication: Lichenification
  13. OPZELURA [Suspect]
     Active Substance: RUXOLITINIB PHOSPHATE
     Indication: Pruritus genital
     Dosage: UNK
  14. OPZELURA [Suspect]
     Active Substance: RUXOLITINIB PHOSPHATE
     Indication: Lichenification

REACTIONS (2)
  - Off label use [Unknown]
  - Drug ineffective for unapproved indication [Unknown]
